FAERS Safety Report 5286997-9 (Version None)
Quarter: 2007Q1

REPORT INFORMATION
  Report Type: 
  Country: None (occurrence: None)
  Receive Date: 20070329
  Receipt Date: 20070321
  Transmission Date: 20070707
  Serious: Yes (Death, Hospitalization)
  Sender: FDA-Public Use
  Company Number: 2007SP004717

PATIENT
  Age: 58 Year
  Sex: Male

DRUGS (6)
  1. TEMODAL [Suspect]
     Indication: GLIOBLASTOMA MULTIFORME
     Dosage: 75 MG/M2; PO
     Route: 048
  2. FILGRASTIM [Concomitant]
  3. DEXAMETHASONE [Concomitant]
  4. CIPROFLOXACIN HCL [Concomitant]
  5. CEFTAZIDIM [Concomitant]
  6. FLUCONAZOLE [Concomitant]

REACTIONS (12)
  - ALANINE AMINOTRANSFERASE INCREASED [None]
  - BLOOD LACTATE DEHYDROGENASE INCREASED [None]
  - CEREBRAL HAEMORRHAGE [None]
  - EXPRESSIVE LANGUAGE DISORDER [None]
  - FEBRILE NEUTROPENIA [None]
  - FLUID INTAKE REDUCED [None]
  - ORAL CANDIDIASIS [None]
  - PYREXIA [None]
  - RENAL IMPAIRMENT [None]
  - SKIN TURGOR DECREASED [None]
  - THROMBOCYTOPENIA [None]
  - WHITE BLOOD CELL COUNT DECREASED [None]
